FAERS Safety Report 11432851 (Version 2)
Quarter: 2015Q3

REPORT INFORMATION
  Report Type: Report from Study
  Country: TR (occurrence: TR)
  Receive Date: 20150828
  Receipt Date: 20150925
  Transmission Date: 20151125
  Serious: Yes (Death, Hospitalization, Other)
  Sender: FDA-Public Use
  Company Number: TR-GILEAD-2015-0169351

PATIENT
  Age: 55 Year
  Sex: Female

DRUGS (1)
  1. LEDIPASVIR/SOFOSBUVIR [Suspect]
     Active Substance: LEDIPASVIR\SOFOSBUVIR
     Indication: HEPATITIS C
     Dosage: 1 DF, QD
     Route: 048
     Dates: start: 20150731, end: 20150822

REACTIONS (8)
  - Hypoxia [Fatal]
  - Hepatic failure [Fatal]
  - Respiratory failure [Fatal]
  - Hepatocellular carcinoma [Fatal]
  - Oesophageal varices haemorrhage [Fatal]
  - Electrolyte imbalance [Not Recovered/Not Resolved]
  - Ascites [Fatal]
  - Hypotension [Not Recovered/Not Resolved]
